FAERS Safety Report 24264346 (Version 2)
Quarter: 2024Q3

REPORT INFORMATION
  Report Type: Spontaneous
  Country: US (occurrence: US)
  Receive Date: 20240829
  Receipt Date: 20240923
  Transmission Date: 20241016
  Serious: Yes (Hospitalization, Other)
  Sender: AMGEN
  Company Number: US-AMGEN-USASP2024170745

PATIENT
  Age: 66 Year
  Sex: Male

DRUGS (3)
  1. OTEZLA [Suspect]
     Active Substance: APREMILAST
     Indication: Psoriatic arthropathy
     Dosage: 30 MILLIGRAM, BID
     Route: 048
     Dates: start: 20240103
  2. DUPIXENT [Concomitant]
     Active Substance: DUPILUMAB
     Dosage: 300 MILLIGRAM
  3. XOLAIR [Concomitant]
     Active Substance: OMALIZUMAB
     Dosage: 150 MILLIGRAM

REACTIONS (2)
  - Myocardial infarction [Recovered/Resolved]
  - Coronary artery occlusion [Recovered/Resolved]

NARRATIVE: CASE EVENT DATE: 20240101
